FAERS Safety Report 20170799 (Version 1)
Quarter: 2021Q4

REPORT INFORMATION
  Report Type: Spontaneous
  Country: US (occurrence: None)
  Receive Date: 20211210
  Receipt Date: 20211210
  Transmission Date: 20220303
  Serious: Yes (Hospitalization)
  Sender: FDA-Public Use
  Company Number: None

PATIENT
  Age: 72 Year
  Sex: Male

DRUGS (1)
  1. APIXABAN [Suspect]
     Active Substance: APIXABAN
     Dosage: FREQUENCY : TWICE A DAY;?
     Route: 048

REACTIONS (7)
  - Gastric disorder [None]
  - Gastrointestinal haemorrhage [None]
  - Gastritis erosive [None]
  - Haematuria [None]
  - Calculus bladder [None]
  - Nephrolithiasis [None]
  - Pyuria [None]

NARRATIVE: CASE EVENT DATE: 20210318
